FAERS Safety Report 7100164-5 (Version None)
Quarter: 2010Q4

REPORT INFORMATION
  Report Type: 
  Country: None (occurrence: None)
  Receive Date: 20101112
  Receipt Date: 20100630
  Transmission Date: 20110411
  Serious: No
  Sender: FDA-Public Use
  Company Number: A0867918A

PATIENT
  Age: 84 Year
  Sex: Female

DRUGS (8)
  1. COREG [Suspect]
     Dosage: 20MG PER DAY
     Route: 048
     Dates: start: 20090101
  2. PLAQUENIL [Concomitant]
  3. DIOVAN [Concomitant]
  4. UNKNOWN MEDICATION [Concomitant]
  5. AMBIEN [Concomitant]
  6. VITAMIN D [Concomitant]
  7. ASCORBIC ACID [Concomitant]
  8. CALCIUM [Concomitant]

REACTIONS (4)
  - ALOPECIA [None]
  - ERYTHEMA [None]
  - PRURITUS [None]
  - RASH [None]
